FAERS Safety Report 15463825 (Version 1)
Quarter: 2018Q4

REPORT INFORMATION
  Report Type: Spontaneous
  Country: US (occurrence: US)
  Receive Date: 20181001
  Receipt Date: 20181001
  Transmission Date: 20190204
  Serious: Yes (Disabling, Other)
  Sender: FDA-Public Use
  Company Number: None

PATIENT
  Age: 66 Year
  Sex: Female
  Weight: 110.68 kg

DRUGS (21)
  1. ACETAMINOPHEN. [Concomitant]
     Active Substance: ACETAMINOPHEN
  2. VITAMIN D3 [Concomitant]
     Active Substance: CHOLECALCIFEROL
  3. CALCIUM [Concomitant]
     Active Substance: CALCIUM
  4. TETRACYCLINE HCL [Concomitant]
     Active Substance: TETRACYCLINE HYDROCHLORIDE
  5. AMLODIPINE [Concomitant]
     Active Substance: AMLODIPINE BESYLATE
  6. ATORVASTATIN [Concomitant]
     Active Substance: ATORVASTATIN
  7. PYLERA [Suspect]
     Active Substance: BISMUTH SUBCITRATE POTASSIUM\METRONIDAZOLE\TETRACYCLINE HYDROCHLORIDE
     Indication: HELICOBACTER INFECTION
     Dosage: ?          QUANTITY:2 DF DOSAGE FORM;?
     Route: 048
     Dates: start: 20171208, end: 20171217
  8. OMEPRAZOLE. [Suspect]
     Active Substance: OMEPRAZOLE
  9. METRONIDAZOLE. [Concomitant]
     Active Substance: METRONIDAZOLE
  10. BISMUT SUBCILTRATE POTASSIUM [Concomitant]
  11. METRONIDAZOLE. [Concomitant]
     Active Substance: METRONIDAZOLE
  12. CLARITHROMYCIN. [Concomitant]
     Active Substance: CLARITHROMYCIN
  13. VALSARTAN. [Concomitant]
     Active Substance: VALSARTAN
  14. RANITIDINE. [Concomitant]
     Active Substance: RANITIDINE
  15. CLARITHROMYCIN. [Concomitant]
     Active Substance: CLARITHROMYCIN
  16. ZINC. [Concomitant]
     Active Substance: ZINC
  17. IRON [Concomitant]
     Active Substance: IRON
  18. HYDROCHLOROTHIAZIDE. [Concomitant]
     Active Substance: HYDROCHLOROTHIAZIDE
  19. CAPSAICIN. [Concomitant]
     Active Substance: CAPSAICIN
  20. MAGNESIUM [Concomitant]
     Active Substance: MAGNESIUM
  21. METRONIDAZOLE. [Concomitant]
     Active Substance: METRONIDAZOLE

REACTIONS (19)
  - Chills [None]
  - Haemorrhage [None]
  - Pyrexia [None]
  - Dysphonia [None]
  - Hypoaesthesia [None]
  - Weight decreased [None]
  - Skin exfoliation [None]
  - Photophobia [None]
  - Back pain [None]
  - Chest pain [None]
  - Pruritus [None]
  - Abdominal pain upper [None]
  - Drug ineffective [None]
  - Balance disorder [None]
  - Headache [None]
  - Dyspnoea [None]
  - Dyspepsia [None]
  - Tinnitus [None]
  - Vomiting [None]

NARRATIVE: CASE EVENT DATE: 20180612
